FAERS Safety Report 5775139-9 (Version None)
Quarter: 2008Q2

REPORT INFORMATION
  Report Type: 
  Country: None (occurrence: None)
  Receive Date: 20080616
  Receipt Date: 20080616
  Transmission Date: 20081010
  Serious: Yes (Other)
  Sender: FDA-Public Use
  Company Number: None

PATIENT
  Age: 50 Year
  Sex: Male
  Weight: 135.1719 kg

DRUGS (2)
  1. PHENYTOIN [Suspect]
     Indication: ADVERSE DRUG REACTION
     Dosage: 400MG/DAY 3 DAYS/1 WEEK PO
     Route: 048
     Dates: start: 20080610, end: 20080613
  2. HYDROCORTISONE [Suspect]
     Dosage: 160MG/DAY 2.5 DAYS/1 WEEK PO
     Route: 048
     Dates: start: 20080610, end: 20080613

REACTIONS (4)
  - CONVULSION [None]
  - DISORIENTATION [None]
  - DYSPNOEA [None]
  - TREMOR [None]
